FAERS Safety Report 19677818 (Version 1)
Quarter: 2021Q3

REPORT INFORMATION
  Report Type: Spontaneous
  Country: DE (occurrence: DE)
  Receive Date: 20210810
  Receipt Date: 20210810
  Transmission Date: 20211014
  Serious: Yes (Hospitalization, Other)
  Sender: FDA-Public Use
  Company Number: DE-AUROBINDO-AUR-APL-2021-034114

PATIENT
  Age: 63 Year
  Sex: Female

DRUGS (2)
  1. IMIPRAMIN [Suspect]
     Active Substance: IMIPRAMINE
     Indication: PRODUCT USED FOR UNKNOWN INDICATION
     Dosage: 25 MILLIGRAM (0?0?1?0)
     Route: 048
  2. ESCITALOPRAM FILM?COATED TABLETS [Suspect]
     Active Substance: ESCITALOPRAM OXALATE
     Indication: PRODUCT USED FOR UNKNOWN INDICATION
     Dosage: 20 MILLIGRAM (1?0?0?0)
     Route: 048

REACTIONS (3)
  - Tachycardia [Unknown]
  - Atrial fibrillation [Unknown]
  - Product prescribing error [Unknown]
